FAERS Safety Report 16928254 (Version 3)
Quarter: 2019Q4

REPORT INFORMATION
  Report Type: Report from Study
  Country: None (occurrence: US)
  Receive Date: 20191017
  Receipt Date: 20191211
  Transmission Date: 20200122
  Serious: Yes (Other)
  Sender: FDA-Public Use
  Company Number: US-ABBVIE-19K-163-2961878-00

PATIENT
  Age: 76 Year
  Sex: Female
  Weight: 68.1 kg

DRUGS (4)
  1. HUMIRA [Suspect]
     Active Substance: ADALIMUMAB
     Indication: RHEUMATOID ARTHRITIS
     Route: 058
     Dates: start: 2017, end: 201904
  2. HUMIRA [Suspect]
     Active Substance: ADALIMUMAB
     Indication: RHEUMATOID ARTHRITIS
     Route: 058
     Dates: start: 201904
  3. CORTISONE [Concomitant]
     Active Substance: CORTISONE
     Indication: MUSCULOSKELETAL DISCOMFORT
     Route: 065
  4. RAMIPRIL. [Suspect]
     Active Substance: RAMIPRIL
     Indication: HYPERTENSION
     Route: 065

REACTIONS (8)
  - Foreign body sensation in eyes [Recovering/Resolving]
  - Blood pressure increased [Recovered/Resolved]
  - Limb injury [Recovered/Resolved]
  - Visual impairment [Recovering/Resolving]
  - Neovascular age-related macular degeneration [Recovered/Resolved]
  - Lacrimation increased [Recovering/Resolving]
  - Gout [Recovered/Resolved]
  - Injection site pain [Recovered/Resolved]

NARRATIVE: CASE EVENT DATE: 201905
